FAERS Safety Report 8234387-9 (Version None)
Quarter: 2012Q1

REPORT INFORMATION
  Report Type: 
  Country: None (occurrence: None)
  Receive Date: 20120321
  Receipt Date: 20120307
  Transmission Date: 20120608
  Serious: Yes (Death, Hospitalization, Other)
  Sender: FDA-Public Use
  Company Number: 2009AL005191

PATIENT
  Age: 76 Year
  Sex: Female
  Weight: 68.0396 kg

DRUGS (25)
  1. DIGOXIN [Suspect]
     Indication: PRODUCT USED FOR UNKNOWN INDICATION
     Dosage: 0.25 MG;QD;PO
     Route: 048
     Dates: start: 20070122, end: 20080501
  2. POTASSIUM CHLORIDE [Concomitant]
  3. DILTIAZEM HCL [Concomitant]
  4. CLARITIN [Concomitant]
  5. METOLAZONE [Concomitant]
  6. CALCIUM CARBONATE [Concomitant]
  7. XANAX [Concomitant]
  8. GLUCOPHAGE [Concomitant]
  9. ATROVENT [Concomitant]
  10. ACTOS [Concomitant]
  11. RENAL CAPS [Concomitant]
  12. LASIX [Concomitant]
  13. LISINOPRIL [Concomitant]
  14. NITRATE [Concomitant]
  15. DARVOCET-N 100 [Concomitant]
  16. POTASSIUM CHLORIDE [Concomitant]
  17. NASONEX [Concomitant]
  18. CLARITIN [Concomitant]
  19. WARFARIN SODIUM [Concomitant]
  20. ISOSORBIDE DINITRATE [Concomitant]
  21. ALBUTEROL [Concomitant]
  22. ZOLOFT [Concomitant]
  23. ZAROXOLYN [Concomitant]
  24. EPOGEN [Concomitant]
  25. COUMADIN [Concomitant]

REACTIONS (54)
  - TACHYCARDIA [None]
  - BUNDLE BRANCH BLOCK RIGHT [None]
  - TOXICITY TO VARIOUS AGENTS [None]
  - BRADYCARDIA [None]
  - HAEMORRHOIDAL HAEMORRHAGE [None]
  - DIALYSIS [None]
  - MULTIPLE INJURIES [None]
  - DYSPNOEA [None]
  - RIGHT VENTRICULAR FAILURE [None]
  - PLEURAL EFFUSION [None]
  - CONDUCTION DISORDER [None]
  - EXTRASYSTOLES [None]
  - OCCULT BLOOD POSITIVE [None]
  - DIVERTICULUM [None]
  - HYPERLIPIDAEMIA [None]
  - CARDIAC ARREST [None]
  - WEIGHT DECREASED [None]
  - RENAL FAILURE CHRONIC [None]
  - HEART RATE INCREASED [None]
  - HYPERTENSION [None]
  - HAEMATURIA [None]
  - BRONCHITIS [None]
  - DEHYDRATION [None]
  - DIARRHOEA [None]
  - ASTHENIA [None]
  - DYSURIA [None]
  - HAEMODIALYSIS [None]
  - WEIGHT INCREASED [None]
  - PULMONARY HYPERTENSION [None]
  - EMOTIONAL DISTRESS [None]
  - HYPOTENSION [None]
  - ANXIETY [None]
  - ACIDOSIS [None]
  - MITRAL VALVE INCOMPETENCE [None]
  - CARDIAC MURMUR [None]
  - PAIN [None]
  - HYPERHIDROSIS [None]
  - CARDIAC FAILURE CONGESTIVE [None]
  - AMNESIA [None]
  - DIASTOLIC DYSFUNCTION [None]
  - HEART RATE IRREGULAR [None]
  - ATRIAL FIBRILLATION [None]
  - TRICUSPID VALVE INCOMPETENCE [None]
  - BLADDER DYSFUNCTION [None]
  - MUSCULOSKELETAL STIFFNESS [None]
  - DEPRESSION [None]
  - HAEMORRHOIDS [None]
  - FLUSHING [None]
  - RENAL FAILURE ACUTE [None]
  - HYPERKALAEMIA [None]
  - FLUID OVERLOAD [None]
  - ANAEMIA [None]
  - INTERNATIONAL NORMALISED RATIO INCREASED [None]
  - VENTRICULAR EXTRASYSTOLES [None]
